FAERS Safety Report 5872747-1 (Version None)
Quarter: 2008Q3

REPORT INFORMATION
  Report Type: 
  Country: None (occurrence: None)
  Receive Date: 20080905
  Receipt Date: 20080829
  Transmission Date: 20090109
  Serious: Yes (Hospitalization)
  Sender: FDA-Public Use
  Company Number: FR-PFIZER INC-2008061215

PATIENT
  Sex: Female

DRUGS (3)
  1. TAHOR [Suspect]
     Dates: start: 20080201, end: 20080708
  2. PREVISCAN [Concomitant]
  3. LEVOTHYROX [Concomitant]

REACTIONS (3)
  - CARDIAC PACEMAKER MALFUNCTION [None]
  - COUGH [None]
  - GASTROOESOPHAGEAL REFLUX DISEASE [None]
